FAERS Safety Report 7134175-0 (Version None)
Quarter: 2010Q4

REPORT INFORMATION
  Report Type: 
  Country: None (occurrence: None)
  Receive Date: 20101203
  Receipt Date: 20101122
  Transmission Date: 20110411
  Serious: Yes (Death, Hospitalization)
  Sender: FDA-Public Use
  Company Number: US-CELGENEUS-163-21880-10091108

PATIENT
  Sex: Male

DRUGS (8)
  1. REVLIMID [Suspect]
     Indication: MULTIPLE MYELOMA
     Route: 048
     Dates: start: 20100801, end: 20100101
  2. PREDNISONE [Suspect]
     Indication: MULTIPLE MYELOMA
     Route: 065
  3. VELCADE [Suspect]
     Indication: MULTIPLE MYELOMA
     Route: 065
  4. COZAAR [Concomitant]
     Route: 065
  5. ALLOPURINOL [Concomitant]
     Route: 065
  6. AMLODIPINE [Concomitant]
     Route: 065
  7. CELEBREX [Concomitant]
     Route: 065
  8. SIMVASTATIN [Concomitant]
     Route: 065

REACTIONS (3)
  - CELLULITIS STAPHYLOCOCCAL [None]
  - MULTIPLE MYELOMA [None]
  - STAPHYLOCOCCAL BACTERAEMIA [None]
